FAERS Safety Report 25842054 (Version 1)
Quarter: 2025Q3

REPORT INFORMATION
  Report Type: Spontaneous
  Country: US (occurrence: US)
  Receive Date: 20250924
  Receipt Date: 20250924
  Transmission Date: 20251021
  Serious: Yes (Other)
  Sender: FRESENIUS KABI
  Company Number: US-FreseniusKabi-FK202512934

PATIENT
  Age: 70 Year
  Sex: Female

DRUGS (2)
  1. PROPOFOL [Suspect]
     Active Substance: PROPOFOL
     Indication: Spinal anaesthesia
  2. PROPOFOL [Suspect]
     Active Substance: PROPOFOL

REACTIONS (1)
  - Seizure like phenomena [Recovered/Resolved]
